FAERS Safety Report 5347800-1 (Version None)
Quarter: 2007Q2

REPORT INFORMATION
  Report Type: 
  Country: None (occurrence: None)
  Receive Date: 20070516
  Receipt Date: 20070326
  Transmission Date: 20071010
  Serious: No
  Sender: FDA-Public Use
  Company Number: SPV1-2007-01904

PATIENT

DRUGS (2)
  1. FOSRENOL [Suspect]
  2. PREDNISONE TAB [Suspect]

REACTIONS (1)
  - BLOOD GLUCOSE INCREASED [None]
